FAERS Safety Report 13349270 (Version 1)
Quarter: 2017Q1

REPORT INFORMATION
  Report Type: Spontaneous
  Country: US (occurrence: US)
  Receive Date: 20170320
  Receipt Date: 20170320
  Transmission Date: 20170428
  Serious: Yes (Other)
  Sender: FDA-Public Use
  Company Number: US-TEVA-699259USA

PATIENT
  Sex: Male
  Weight: 108.96 kg

DRUGS (2)
  1. LAMOTRIGINE. [Concomitant]
     Active Substance: LAMOTRIGINE
  2. TOPIRAMATE. [Suspect]
     Active Substance: TOPIRAMATE
     Dates: start: 2009

REACTIONS (2)
  - Wrong technique in product usage process [Unknown]
  - Nephrolithiasis [Unknown]

NARRATIVE: CASE EVENT DATE: 2009
